APPROVED DRUG PRODUCT: SIROLIMUS
Active Ingredient: SIROLIMUS
Strength: 1MG/ML
Dosage Form/Route: SOLUTION;ORAL
Application: A215080 | Product #001 | TE Code: AA
Applicant: HETERO LABS LTD UNIT V
Approved: Sep 16, 2024 | RLD: No | RS: No | Type: RX